FAERS Safety Report 18628430 (Version 1)
Quarter: 2020Q4

REPORT INFORMATION
  Report Type: Spontaneous
  Country: US (occurrence: US)
  Receive Date: 20201217
  Receipt Date: 20201217
  Transmission Date: 20210114
  Serious: No
  Sender: FDA-Public Use
  Company Number: US-PFIZER INC-2020492621

PATIENT
  Age: 72 Year
  Sex: Female
  Weight: 93.44 kg

DRUGS (1)
  1. PREGABALIN. [Suspect]
     Active Substance: PREGABALIN
     Indication: NEURALGIA
     Dosage: 75 MG, 2X/DAY (ONE IN THE MORNING AND ONE AT NIGHT)
     Dates: start: 20201201

REACTIONS (4)
  - Feeling abnormal [Unknown]
  - Therapeutic response unexpected [Unknown]
  - Somnolence [Unknown]
  - Fatigue [Unknown]
